FAERS Safety Report 5281137-4 (Version None)
Quarter: 2007Q1

REPORT INFORMATION
  Report Type: 
  Country: None (occurrence: None)
  Receive Date: 20070323
  Receipt Date: 20070313
  Transmission Date: 20070707
  Serious: Yes (Hospitalization, Other)
  Sender: FDA-Public Use
  Company Number: 2006SP008888

PATIENT
  Age: 53 Year
  Sex: Male
  Weight: 57 kg

DRUGS (12)
  1. TEMODAL [Suspect]
     Indication: ANAPLASTIC ASTROCYTOMA
     Dosage: 150 MG/M2; QD; PO
     Route: 048
     Dates: start: 20061024, end: 20061028
  2. TEMODAL [Suspect]
     Indication: RECURRENT CANCER
     Dosage: 150 MG/M2; QD; PO
     Route: 048
     Dates: start: 20061024, end: 20061028
  3. RADIOTHERAPY [Concomitant]
  4. SELBEX [Concomitant]
  5. LEXIN [Concomitant]
  6. SELENICA-R [Concomitant]
  7. PROTECADIN [Concomitant]
  8. MAGNESIUM OXIDE [Concomitant]
  9. RINDERON [Concomitant]
  10. BIO-THREE [Concomitant]
  11. DAI-KENCHU-TO [Concomitant]
  12. SENNOSIDE [Concomitant]

REACTIONS (5)
  - DEEP VEIN THROMBOSIS [None]
  - DEHYDRATION [None]
  - INTRACRANIAL TUMOUR HAEMORRHAGE [None]
  - NEOPLASM PROGRESSION [None]
  - PNEUMONIA [None]
